FAERS Safety Report 9216142 (Version 1)
Quarter: 2013Q2

REPORT INFORMATION
  Report Type: Spontaneous
  Country: CO (occurrence: CO)
  Receive Date: 20130408
  Receipt Date: 20130408
  Transmission Date: 20140414
  Serious: Yes (Hospitalization)
  Sender: FDA-Public Use
  Company Number: CO-ABBOTT-13P-036-1073484-00

PATIENT
  Age: 59 Year
  Sex: Female
  Weight: 45 kg

DRUGS (1)
  1. HUMIRA [Suspect]
     Indication: RHEUMATOID ARTHRITIS
     Route: 058
     Dates: start: 20110602, end: 20130126

REACTIONS (5)
  - Arthralgia [Recovering/Resolving]
  - Arthritis [Recovering/Resolving]
  - Chondrocalcinosis [Recovering/Resolving]
  - Hypomagnesaemia [Recovering/Resolving]
  - Short-bowel syndrome [Recovering/Resolving]
